FAERS Safety Report 21963152 (Version 1)
Quarter: 2023Q1

REPORT INFORMATION
  Report Type: Spontaneous
  Country: US (occurrence: None)
  Receive Date: 20230205
  Receipt Date: 20230205
  Transmission Date: 20230417
  Serious: Yes (Disabling, Other)
  Sender: FDA-Public Use
  Company Number: None

PATIENT
  Sex: Female
  Weight: 63 kg

DRUGS (1)
  1. LATUDA [Suspect]
     Active Substance: LURASIDONE HYDROCHLORIDE
     Indication: Bipolar disorder
     Route: 048

REACTIONS (7)
  - Fall [None]
  - Wrist fracture [None]
  - Rotator cuff syndrome [None]
  - Bone cancer [None]
  - Dyskinesia [None]
  - Neuropathy peripheral [None]
  - Negative thoughts [None]
